FAERS Safety Report 5633872-3 (Version None)
Quarter: 2008Q1

REPORT INFORMATION
  Report Type: 
  Country: None (occurrence: None)
  Receive Date: 20080221
  Receipt Date: 20080219
  Transmission Date: 20080703
  Serious: Yes (Other)
  Sender: FDA-Public Use
  Company Number: US-BOEHRINGER INGELHEIM GMBH, GERMANY-2008-BP-02434RO

PATIENT
  Age: 64 Year
  Sex: Female

DRUGS (1)
  1. PILOCARPINE [Suspect]
     Indication: MYDRIASIS
     Route: 031

REACTIONS (5)
  - MACULOPATHY [None]
  - RETINAL DISORDER [None]
  - SCOTOMA [None]
  - VISUAL ACUITY REDUCED [None]
  - VITREOUS DETACHMENT [None]
